FAERS Safety Report 19576704 (Version 1)
Quarter: 2021Q3

REPORT INFORMATION
  Report Type: Spontaneous
  Country: US (occurrence: US)
  Receive Date: 20210719
  Receipt Date: 20210719
  Transmission Date: 20211014
  Serious: Yes (Life-Threatening, Hospitalization)
  Sender: FDA-Public Use
  Company Number: None

PATIENT
  Age: 50 Year
  Sex: Male
  Weight: 144 kg

DRUGS (1)
  1. HEPARIN [Suspect]
     Active Substance: HEPARIN SODIUM
     Indication: DEEP VEIN THROMBOSIS
     Dosage: ?          OTHER FREQUENCY:UNITS/H INFUSION;?
     Route: 041
     Dates: start: 20210715, end: 20210718

REACTIONS (8)
  - Depressed level of consciousness [None]
  - Ischaemic hepatitis [None]
  - Renal replacement therapy [None]
  - Retroperitoneal haemorrhage [None]
  - Acute kidney injury [None]
  - Hypoxia [None]
  - Haemoglobin decreased [None]
  - Hypovolaemic shock [None]

NARRATIVE: CASE EVENT DATE: 20210718
